FAERS Safety Report 9521651 (Version 1)
Quarter: 2013Q1

REPORT INFORMATION
  Report Type: Spontaneous
  Country: US (occurrence: None)
  Receive Date: 20130305
  Receipt Date: 20130305
  Transmission Date: 20140127
  Serious: Yes (Other)
  Sender: FDA-Public Use
  Company Number: 163-21880-12011430

PATIENT
  Age: 64 Year
  Sex: Male

DRUGS (12)
  1. REVLIMID (LENALIDOMIDE) (25 MILLIGRAM, CAPSULES) [Suspect]
     Indication: PLASMA CELL MYELOMA
     Dosage: 25 MG, DAILY X 21, PO
     Dates: start: 20120101
  2. COUMADIN (WARFARIN SODIUM) [Concomitant]
  3. HYDRALAZINE HCL(HYDRALAZINE HYDROCHLORIDE)(UNKNOWN) [Concomitant]
  4. LOVASTATIN(LOVASTATIN)(UNKNOWN) [Concomitant]
  5. AVAPRO(IRBESARTAN)(UNKNOWN) [Concomitant]
  6. FUROSEMIDE(FUROSEMIDE)(UNKNOWN) [Concomitant]
  7. METOPROLOL TARTRATE(METOPROLOL TARTRATE)(UNKNOWN) [Concomitant]
  8. HUMALOG(INSULIN LISPRO)(UNKNOWN) [Concomitant]
  9. SOMA(CARISOPRODOL)(UNKNOWN) [Concomitant]
  10. DECADRON(DEXAMETHASONE)(4 MILLIGRAM, UNKNOWN) [Concomitant]
  11. LASIX(FUROSEMIDE)(UNKNOWN) [Concomitant]
  12. VITAMIN B 12(VITAMIN B 12)(UNKNOWN) [Concomitant]

REACTIONS (2)
  - Hypokalaemia [None]
  - Diarrhoea [None]
